FAERS Safety Report 5028890-2 (Version None)
Quarter: 2006Q2

REPORT INFORMATION
  Report Type: 
  Country: None (occurrence: None)
  Receive Date: 20060501
  Receipt Date: 20060223
  Transmission Date: 20061013
  Serious: No
  Sender: FDA-Public Use
  Company Number: 200611764US

PATIENT
  Age: 58 Year
  Sex: Female

DRUGS (1)
  1. KETEK [Suspect]
     Indication: BRONCHITIS
     Dosage: 800 MG QD PO
     Route: 048
     Dates: start: 20060127, end: 20060203

REACTIONS (4)
  - ABDOMINAL PAIN UPPER [None]
  - CONTUSION [None]
  - LABORATORY TEST ABNORMAL [None]
  - RASH PRURITIC [None]
